FAERS Safety Report 5221450-X (Version None)
Quarter: 2007Q1

REPORT INFORMATION
  Report Type: 
  Country: None (occurrence: None)
  Receive Date: 20070126
  Receipt Date: 20070117
  Transmission Date: 20070707
  Serious: Yes (Hospitalization)
  Sender: FDA-Public Use
  Company Number: GB-MERCK-0701GBR00043

PATIENT
  Age: 59 Year
  Sex: Female
  Weight: 99 kg

DRUGS (6)
  1. ZOCOR [Suspect]
     Indication: ANGINA PECTORIS
     Route: 048
     Dates: start: 20061201
  2. MIRTAZAPINE [Concomitant]
     Indication: DEPRESSION
     Route: 065
  3. NEFAZODONE HYDROCHLORIDE [Concomitant]
     Indication: DEPRESSION
     Route: 065
     Dates: end: 20061215
  4. DIAZEPAM [Concomitant]
     Indication: DEPRESSION
     Route: 065
  5. QUETIAPINE FUMARATE [Concomitant]
     Indication: DEPRESSION
     Route: 065
  6. OMEPRAZOLE [Concomitant]
     Indication: GASTROOESOPHAGEAL REFLUX DISEASE
     Route: 065

REACTIONS (3)
  - ASTHENIA [None]
  - BLOOD CREATINE PHOSPHOKINASE INCREASED [None]
  - MYALGIA [None]
